FAERS Safety Report 19312124 (Version 1)
Quarter: 2021Q2

REPORT INFORMATION
  Report Type: Spontaneous
  Country: US (occurrence: US)
  Receive Date: 20210527
  Receipt Date: 20210527
  Transmission Date: 20210717
  Serious: Yes (Hospitalization)
  Sender: FDA-Public Use
  Company Number: US-TEVA-2021-US-1914940

PATIENT
  Age: 69 Year
  Sex: Male

DRUGS (3)
  1. SODIUM CHLORIDE. [Concomitant]
     Active Substance: SODIUM CHLORIDE
     Indication: VEHICLE SOLUTION USE
     Dosage: VANCOMYCIN 500MG IN 0.9% SODIUM CHLORIDE 100ML SOLUTION; RECTAL ENEMA
     Route: 054
  2. CLINDAMYCIN. [Suspect]
     Active Substance: CLINDAMYCIN
     Indication: PROPHYLAXIS
     Dosage: 900 MILLIGRAM DAILY; THREE TIMES DAILY
     Route: 065
  3. CIPROFLOXACIN. [Concomitant]
     Active Substance: CIPROFLOXACIN
     Indication: EVIDENCE BASED TREATMENT
     Dosage: 400 MILLIGRAM DAILY; DAY 1
     Route: 042

REACTIONS (2)
  - Feeding disorder [Recovered/Resolved]
  - Clostridium difficile colitis [Recovered/Resolved]
